FAERS Safety Report 15752071 (Version 1)
Quarter: 2018Q4

REPORT INFORMATION
  Report Type: Report from Study
  Country: ES (occurrence: ES)
  Receive Date: 20181221
  Receipt Date: 20181221
  Transmission Date: 20190205
  Serious: Yes (Life-Threatening, Hospitalization, Other)
  Sender: FDA-Public Use
  Company Number: ES-ASTELLAS-2018US053690

PATIENT
  Age: 24 Year
  Sex: Female

DRUGS (5)
  1. PARACETAMOL [Concomitant]
     Active Substance: ACETAMINOPHEN
     Indication: ARTHRALGIA
     Route: 048
     Dates: start: 20161111
  2. PREDNISOLONA                       /00016201/ [Concomitant]
     Active Substance: PREDNISOLONE
     Indication: ANTISYNTHETASE SYNDROME
     Route: 048
  3. RITUXIMAB. [Suspect]
     Active Substance: RITUXIMAB
     Indication: ANTISYNTHETASE SYNDROME
     Dosage: 2 G, 6 MONTH
     Route: 042
     Dates: start: 20170717, end: 20180212
  4. DOLQUINE [Suspect]
     Active Substance: HYDROXYCHLOROQUINE SULFATE
     Indication: RHEUMATOID ARTHRITIS
     Route: 048
     Dates: start: 20170323
  5. TACROLIMUS. [Suspect]
     Active Substance: TACROLIMUS
     Indication: ANTISYNTHETASE SYNDROME
     Route: 048
     Dates: start: 20170209

REACTIONS (2)
  - Agranulocytosis [Recovered/Resolved]
  - Product use in unapproved indication [Unknown]

NARRATIVE: CASE EVENT DATE: 20170209
